FAERS Safety Report 5821636-7 (Version None)
Quarter: 2008Q3

REPORT INFORMATION
  Report Type: 
  Country: None (occurrence: None)
  Receive Date: 20080722
  Receipt Date: 20080709
  Transmission Date: 20090109
  Serious: Yes (Other)
  Sender: FDA-Public Use
  Company Number: 200807IM000219

PATIENT
  Sex: Female

DRUGS (3)
  1. INTERFERON GAMMA-1B [Suspect]
     Indication: OVARIAN EPITHELIAL CANCER RECURRENT
     Dosage: SUBCUTANEOUS
     Route: 058
  2. GRANULOCYTE MACROPHAGE COLONY STIMULATING FACTOR [Suspect]
     Indication: OVARIAN EPITHELIAL CANCER RECURRENT
  3. CARBOPLATIN [Suspect]
     Indication: OVARIAN EPITHELIAL CANCER RECURRENT

REACTIONS (1)
  - SMALL INTESTINAL OBSTRUCTION [None]
